FAERS Safety Report 5921923-8 (Version None)
Quarter: 2008Q4

REPORT INFORMATION
  Report Type: 
  Country: None (occurrence: None)
  Receive Date: 20081014
  Receipt Date: 20081006
  Transmission Date: 20090506
  Serious: Yes (Hospitalization)
  Sender: FDA-Public Use
  Company Number: 2008BI022560

PATIENT
  Age: 35 Year
  Sex: Female

DRUGS (1)
  1. AVONEX [Suspect]
     Indication: MULTIPLE SCLEROSIS
     Dosage: 30 UG; QW; IM, 30 UG; QW; IM
     Route: 030
     Dates: start: 20020601

REACTIONS (10)
  - APPENDIX DISORDER [None]
  - COLON CANCER [None]
  - CYST [None]
  - DIVERTICULITIS [None]
  - GALLBLADDER DISORDER [None]
  - GALLBLADDER PAIN [None]
  - GASTROINTESTINAL INFECTION [None]
  - HERNIA [None]
  - INFLAMMATION [None]
  - UTERINE DISORDER [None]
